FAERS Safety Report 7553823-4 (Version None)
Quarter: 2011Q2

REPORT INFORMATION
  Report Type: 
  Country: None (occurrence: None)
  Receive Date: 20110617
  Receipt Date: 20110610
  Transmission Date: 20111010
  Serious: Yes (Other)
  Sender: FDA-Public Use
  Company Number: JP-B.I. PHARMACEUTICALS,INC./RIDGEFIELD-2011-BP-14921NB

PATIENT
  Sex: Male

DRUGS (9)
  1. PARIET/SODIUM RABEPRAZOLE [Concomitant]
     Indication: GASTRIC ULCER
     Dosage: 10 MG
     Route: 048
     Dates: start: 20100218
  2. MYSLEE/ZOLPIDEM TARTRATE [Concomitant]
     Indication: INSOMNIA
     Dosage: 5 MG
     Route: 048
     Dates: start: 20110412
  3. ADALAT [Concomitant]
     Indication: HYPERTENSION
     Dosage: 40 MG
     Route: 048
     Dates: start: 20100218
  4. PARIET/SODIUM RABEPRAZOLE [Concomitant]
     Indication: REFLUX OESOPHAGITIS
  5. PRADAXA [Suspect]
     Indication: ATRIAL FIBRILLATION
     Dosage: 300 MG
     Route: 048
     Dates: start: 20110425, end: 20110522
  6. URSO 250 [Concomitant]
     Dosage: 600 MG
     Route: 048
  7. WARFARIN SODIUM [Concomitant]
  8. SUNRYTHM/PILSICAINIDE HYDROCHLORIDE HYDRATE [Concomitant]
     Indication: ATRIAL FIBRILLATION
     Dosage: 100 MG
     Route: 048
     Dates: start: 20100218
  9. MUCOSTA/REBAMIPIDE [Concomitant]
     Dosage: 300 MG
     Route: 048

REACTIONS (5)
  - HEPATIC FUNCTION ABNORMAL [None]
  - BRONCHITIS [None]
  - HEPATIC CYST [None]
  - ALANINE AMINOTRANSFERASE INCREASED [None]
  - ASPARTATE AMINOTRANSFERASE INCREASED [None]
